FAERS Safety Report 9727570 (Version 2)
Quarter: 2013Q4

REPORT INFORMATION
  Report Type: Report from Study
  Country: GR (occurrence: GR)
  Receive Date: 20131203
  Receipt Date: 20131212
  Transmission Date: 20140711
  Serious: Yes (Hospitalization)
  Sender: FDA-Public Use
  Company Number: GR-TEVA-448351USA

PATIENT
  Age: 54 Year
  Sex: Female
  Weight: 65 kg

DRUGS (10)
  1. BENDAMUSTINE [Suspect]
     Indication: CHRONIC LYMPHOCYTIC LEUKAEMIA
     Dosage: 3.9667 MILLIGRAM DAILY;
     Route: 042
     Dates: start: 20130731
  2. BENDAMUSTINE [Suspect]
     Indication: LYMPHOCYTIC LYMPHOMA
     Dosage: 3.9667 MILLIGRAM DAILY;
     Route: 042
     Dates: start: 20131024
  3. RITUXIMAB [Suspect]
     Indication: CHRONIC LYMPHOCYTIC LEUKAEMIA
     Dosage: 28.3333 MILLIGRAM DAILY;
     Route: 042
     Dates: start: 20130730
  4. RITUXIMAB [Suspect]
     Indication: LYMPHOCYTIC LYMPHOMA
     Dosage: 28.3333 MILLIGRAM DAILY;
     Route: 042
     Dates: start: 20131023
  5. IBRUTINIB/PLACEBO [Suspect]
     Indication: CHRONIC LYMPHOCYTIC LEUKAEMIA
     Dosage: 420 MILLIGRAM DAILY;
     Route: 048
     Dates: start: 20130731
  6. IBRUTINIB/PLACEBO [Suspect]
     Indication: LYMPHOCYTIC LYMPHOMA
     Dosage: 420 MILLIGRAM DAILY;
     Route: 048
     Dates: start: 20131115
  7. ZYLAPOUR [Concomitant]
     Indication: PROPHYLAXIS
  8. VALTREX [Concomitant]
     Indication: PROPHYLAXIS
     Route: 048
  9. BACTRIMEL [Concomitant]
     Indication: PROPHYLAXIS
     Route: 048
  10. FILICINE [Concomitant]
     Indication: THALASSAEMIA BETA
     Route: 048

REACTIONS (1)
  - Transitional cell carcinoma [Unknown]
